FAERS Safety Report 20102556 (Version 1)
Quarter: 2021Q4

REPORT INFORMATION
  Report Type: Spontaneous
  Country: US (occurrence: US)
  Receive Date: 20211123
  Receipt Date: 20211123
  Transmission Date: 20220303
  Serious: Yes (Other)
  Sender: FDA-Public Use
  Company Number: US-GLAXOSMITHKLINE-US2021GSK238071

PATIENT
  Sex: Female

DRUGS (18)
  1. ZANTAC [Suspect]
     Active Substance: RANITIDINE HYDROCHLORIDE
     Indication: Gastrooesophageal reflux disease
     Dosage: 150 MG, 1 TABLET TWICE A DAY
     Route: 065
     Dates: start: 200901, end: 202005
  2. ZANTAC [Suspect]
     Active Substance: RANITIDINE HYDROCHLORIDE
     Indication: Gastritis
  3. ZANTAC [Suspect]
     Active Substance: RANITIDINE HYDROCHLORIDE
     Indication: Abdominal pain upper
  4. ZANTAC [Suspect]
     Active Substance: RANITIDINE HYDROCHLORIDE
     Indication: Gastrooesophageal reflux disease
     Dosage: 150 MG, 1 TABLET TWICE A DAY
     Route: 065
     Dates: start: 200901, end: 202005
  5. ZANTAC [Suspect]
     Active Substance: RANITIDINE HYDROCHLORIDE
     Indication: Gastritis
  6. ZANTAC [Suspect]
     Active Substance: RANITIDINE HYDROCHLORIDE
     Indication: Abdominal pain upper
  7. RANITIDINE [Suspect]
     Active Substance: RANITIDINE
     Indication: Gastrooesophageal reflux disease
     Dosage: 150 MG, 1 TABLET TWICE A DAY
     Route: 065
     Dates: start: 200901, end: 202005
  8. RANITIDINE [Suspect]
     Active Substance: RANITIDINE
     Indication: Gastritis
  9. RANITIDINE [Suspect]
     Active Substance: RANITIDINE
     Indication: Abdominal pain upper
  10. RANITIDINE [Suspect]
     Active Substance: RANITIDINE
     Indication: Gastrooesophageal reflux disease
     Dosage: 150 MG, 1 TABLET TWICE A DAY
     Route: 065
     Dates: start: 200901, end: 202005
  11. RANITIDINE [Suspect]
     Active Substance: RANITIDINE
     Indication: Gastritis
  12. RANITIDINE [Suspect]
     Active Substance: RANITIDINE
     Indication: Abdominal pain upper
  13. ZANTAC [Suspect]
     Active Substance: RANITIDINE HYDROCHLORIDE
     Indication: Gastrooesophageal reflux disease
     Dosage: 150 MG, 1 TABLET TWICE A DAY
     Route: 065
     Dates: start: 200901, end: 202005
  14. ZANTAC [Suspect]
     Active Substance: RANITIDINE HYDROCHLORIDE
     Indication: Gastritis
  15. ZANTAC [Suspect]
     Active Substance: RANITIDINE HYDROCHLORIDE
     Indication: Abdominal pain upper
  16. RANITIDINE [Suspect]
     Active Substance: RANITIDINE
     Indication: Gastrooesophageal reflux disease
     Dosage: 150 MG, 1 TABLET TWICE A DAY
     Route: 065
     Dates: start: 200901, end: 202005
  17. RANITIDINE [Suspect]
     Active Substance: RANITIDINE
     Indication: Gastritis
  18. RANITIDINE [Suspect]
     Active Substance: RANITIDINE
     Indication: Abdominal pain upper

REACTIONS (1)
  - Breast cancer [Unknown]
